FAERS Safety Report 25140971 (Version 1)
Quarter: 2025Q1

REPORT INFORMATION
  Report Type: Spontaneous
  Country: US (occurrence: None)
  Receive Date: 20250331
  Receipt Date: 20250331
  Transmission Date: 20250409
  Serious: Yes (Disabling)
  Sender: FDA-CTU
  Company Number: None

PATIENT
  Age: 80 Year
  Sex: Male
  Weight: 72.9 kg

DRUGS (12)
  1. DALFAMPRIDINE [Suspect]
     Active Substance: DALFAMPRIDINE
     Indication: Hereditary ataxia
     Dosage: OTHER QUANTITY : 1 TABLET(S);?FREQUENCY : DAILY;?
     Route: 048
     Dates: start: 20250225, end: 20250228
  2. ATORVASTATIN [Concomitant]
     Active Substance: ATORVASTATIN
  3. PANTOPRAZOLE SODIUM [Concomitant]
     Active Substance: PANTOPRAZOLE SODIUM
  4. spironolactin [Concomitant]
  5. VALSARTAN [Concomitant]
     Active Substance: VALSARTAN
  6. FUROSEMIDE [Concomitant]
     Active Substance: FUROSEMIDE
  7. CARVEDILOL [Concomitant]
     Active Substance: CARVEDILOL
  8. MINERALS\VITAMINS [Concomitant]
     Active Substance: MINERALS\VITAMINS
  9. VITAMIN B12 [Concomitant]
     Active Substance: CYANOCOBALAMIN
  10. ACETAMINOPHEN [Concomitant]
     Active Substance: ACETAMINOPHEN
  11. loratiden [Concomitant]
  12. ducalax [Concomitant]

REACTIONS (7)
  - Off label use [None]
  - Hereditary ataxia [None]
  - Condition aggravated [None]
  - General physical health deterioration [None]
  - Fall [None]
  - Gait disturbance [None]
  - Dysphonia [None]

NARRATIVE: CASE EVENT DATE: 20250228
